FAERS Safety Report 20614225 (Version 3)
Quarter: 2022Q2

REPORT INFORMATION
  Report Type: Other
  Country: TR (occurrence: None)
  Receive Date: 20220320
  Receipt Date: 20220630
  Transmission Date: 20220721
  Serious: No
  Sender: FDA-Public Use
  Company Number: TR-ROCHE-3046564

PATIENT
  Age: 58 Year
  Sex: Female
  Weight: 72 kg

DRUGS (5)
  1. OCRELIZUMAB [Suspect]
     Active Substance: OCRELIZUMAB
     Indication: Multiple sclerosis
     Route: 042
     Dates: start: 20190307
  2. OKSAPAR [Concomitant]
     Route: 030
     Dates: start: 20211005
  3. FLUZAMED [Concomitant]
     Route: 048
     Dates: start: 20211007
  4. PANTO (TURKEY) [Concomitant]
     Route: 048
     Dates: start: 20211007
  5. INFEX (TURKEY) [Concomitant]
     Route: 048
     Dates: start: 20211007

REACTIONS (4)
  - Rhinorrhoea [Recovered/Resolved]
  - Fatigue [Recovered/Resolved]
  - COVID-19 [Recovered/Resolved]
  - Cough [Recovered/Resolved]

NARRATIVE: CASE EVENT DATE: 20220306
